FAERS Safety Report 23919739 (Version 1)
Quarter: 2024Q2

REPORT INFORMATION
  Report Type: Spontaneous
  Country: US (occurrence: US)
  Receive Date: 20240530
  Receipt Date: 20240530
  Transmission Date: 20240716
  Serious: No
  Sender: FDA-Public Use
  Company Number: US-PFIZER INC-PV202400070893

PATIENT
  Age: 56 Year
  Sex: Male

DRUGS (3)
  1. HYDROXYZINE PAMOATE [Suspect]
     Active Substance: HYDROXYZINE PAMOATE
     Indication: Pruritus
     Dosage: UNK
     Dates: start: 2024, end: 202402
  2. TARPEYO [Suspect]
     Active Substance: BUDESONIDE
     Indication: IgA nephropathy
     Dosage: 8 MG, EVERY 1 D
     Route: 048
     Dates: start: 20230927, end: 2024
  3. TARPEYO [Suspect]
     Active Substance: BUDESONIDE
     Indication: Haematuria

REACTIONS (6)
  - Diplopia [Unknown]
  - Fatigue [Unknown]
  - Dysarthria [Unknown]
  - Blood pressure increased [Unknown]
  - Product use issue [Unknown]
  - Prescribed underdose [Unknown]

NARRATIVE: CASE EVENT DATE: 20240201
